FAERS Safety Report 17822250 (Version 3)
Quarter: 2025Q2

REPORT INFORMATION
  Report Type: Spontaneous
  Country: IT (occurrence: IT)
  Receive Date: 20200526
  Receipt Date: 20250624
  Transmission Date: 20250717
  Serious: Yes (Hospitalization, Other)
  Sender: AUROBINDO
  Company Number: IT-BLUEFISH PHARMACEUTICALS AB-2020BF000783

PATIENT
  Age: 63 Year
  Sex: Female

DRUGS (2)
  1. METFORMIN [Suspect]
     Active Substance: METFORMIN HYDROCHLORIDE
     Indication: Type 2 diabetes mellitus
     Route: 065
  2. REPAGLINIDE [Suspect]
     Active Substance: REPAGLINIDE
     Indication: Type 2 diabetes mellitus
     Route: 065

REACTIONS (8)
  - Amyloidosis [Recovered/Resolved]
  - Malabsorption [Unknown]
  - Generalised oedema [Recovered/Resolved]
  - Hypoalbuminaemia [Recovered/Resolved]
  - Iron deficiency [Recovered/Resolved]
  - Vitamin B12 deficiency [Recovered/Resolved]
  - Diarrhoea [Recovered/Resolved]
  - Malaise [Unknown]

NARRATIVE: CASE EVENT DATE: 20131101
